FAERS Safety Report 15351947 (Version 2)
Quarter: 2018Q3

REPORT INFORMATION
  Report Type: Report from Study
  Country: US (occurrence: US)
  Receive Date: 20180905
  Receipt Date: 20180912
  Transmission Date: 20181010
  Serious: Yes (Hospitalization)
  Sender: FDA-Public Use
  Company Number: US-BAYER-2018-162827

PATIENT
  Age: 62 Year
  Sex: Female
  Weight: 62.09 kg

DRUGS (5)
  1. ADEMPAS [Suspect]
     Active Substance: RIOCIGUAT
     Indication: PULMONARY ARTERIAL HYPERTENSION
     Dosage: 2.5 MG, TID
     Route: 048
  2. OPSUMIT [Concomitant]
     Active Substance: MACITENTAN
     Dosage: UNK
  3. VELETRI [Concomitant]
     Active Substance: EPOPROSTENOL
     Dosage: UNK
  4. ADEMPAS [Suspect]
     Active Substance: RIOCIGUAT
     Indication: PULMONARY ARTERIAL HYPERTENSION
     Dosage: UNK
     Dates: start: 20171016
  5. VELETRI [Concomitant]
     Active Substance: EPOPROSTENOL
     Dosage: UNK
     Dates: start: 20180821

REACTIONS (6)
  - Tachycardia [None]
  - Headache [Not Recovered/Not Resolved]
  - Hospitalisation [None]
  - Pulmonary arterial hypertension [Unknown]
  - Central venous catheterisation [None]
  - Pain [Not Recovered/Not Resolved]

NARRATIVE: CASE EVENT DATE: 2018
